FAERS Safety Report 5806707-3 (Version None)
Quarter: 2008Q3

REPORT INFORMATION
  Report Type: 
  Country: None (occurrence: None)
  Receive Date: 20080710
  Receipt Date: 20080703
  Transmission Date: 20090109
  Serious: Yes (Other)
  Sender: FDA-Public Use
  Company Number: US-AMGEN-QUU292418

PATIENT
  Sex: Male

DRUGS (1)
  1. KINERET [Suspect]
     Indication: DRUG USE FOR UNKNOWN INDICATION
     Dates: start: 20080515

REACTIONS (3)
  - INJECTION SITE IRRITATION [None]
  - RED BLOOD CELL SEDIMENTATION RATE INCREASED [None]
  - SQUAMOUS CELL CARCINOMA OF SKIN [None]
